FAERS Safety Report 9315722 (Version 1)
Quarter: 2013Q2

REPORT INFORMATION
  Report Type: Report from Study
  Country: GB (occurrence: GB)
  Receive Date: 20130529
  Receipt Date: 20130529
  Transmission Date: 20140414
  Serious: Yes (Hospitalization, Other)
  Sender: FDA-Public Use
  Company Number: PHHY2013GB051864

PATIENT
  Age: 7 Decade
  Sex: Female
  Weight: 61 kg

DRUGS (16)
  1. DOXORUBICIN HYDROCHLORIDE [Suspect]
     Indication: DIFFUSE LARGE B-CELL LYMPHOMA
     Dosage: 80 MG; DOSAGE FORM: LIPOSOME INJECTION
     Route: 042
     Dates: start: 20130201
  2. DOXORUBICIN HYDROCHLORIDE [Suspect]
     Dosage: 80 MG; DOSAGE FORM: LIPOSOME INJECTION, MOST RECENT DOSE
     Route: 042
     Dates: start: 20130313
  3. VINCRISTINE [Suspect]
     Indication: DIFFUSE LARGE B-CELL LYMPHOMA
     Dosage: 2 MG, UNK
     Route: 065
     Dates: start: 20130201
  4. VINCRISTINE [Suspect]
     Dosage: 2 MG, MOST RECENT DOSE
     Route: 065
     Dates: start: 20130313
  5. PREDNISOLONE [Suspect]
     Indication: DIFFUSE LARGE B-CELL LYMPHOMA
     Dosage: 100 MG, QD; DOSAGE FORM: TABLET
     Route: 065
     Dates: start: 20130201
  6. PREDNISOLONE [Suspect]
     Dosage: 100 MG; DOSAGE FORM: TABLET, MOST RECENT DOSE
     Route: 065
     Dates: start: 20130318
  7. CYCLOPHOSPHAMIDE [Suspect]
     Indication: DIFFUSE LARGE B-CELL LYMPHOMA
     Dosage: 1300 MG: DOSAGE FORM: SOLUTION FOR INJECTION
     Route: 065
     Dates: start: 20130201
  8. CYCLOPHOSPHAMIDE [Suspect]
     Dosage: 1300 MG: DOSAGE FORM: SOLUTION FOR INJECTION, MOST RECENT DOSE
     Route: 065
     Dates: start: 20130313
  9. RITUXIMAB [Suspect]
     Indication: DIFFUSE LARGE B-CELL LYMPHOMA
     Dosage: 650 MG: DOSAGE FORM: SOLUTION FOR INJECTION, MOST RECENT DOSE
     Dates: start: 20130201
  10. RITUXIMAB [Suspect]
     Dosage: 650 MG: DOSAGE FORM: SOLUTION FOR INJECTION, MOST RECENT DOSE
     Route: 065
     Dates: start: 20130313
  11. TRAMADOL [Concomitant]
     Dosage: 400 MG, UNK
     Route: 065
  12. PARACETAMOL [Concomitant]
     Dosage: 1 G, UNK
     Route: 065
  13. ALLOPURINOL [Concomitant]
     Dosage: 300 MG, UNK
     Route: 048
  14. OMEPRAZOLE [Concomitant]
     Dosage: 20 MG, UNK
     Route: 065
  15. ORAMORPH [Concomitant]
     Dosage: 30 ML, UNK
     Route: 065
  16. LEVOTHYROXINE [Concomitant]
     Dosage: 75 UG, UNK
     Route: 048
     Dates: start: 2002

REACTIONS (6)
  - Pneumonia [Recovered/Resolved]
  - Pyrexia [Recovered/Resolved]
  - Nausea [Recovered/Resolved]
  - Fatigue [Recovered/Resolved]
  - Cough [Recovered/Resolved]
  - Chest pain [Recovered/Resolved]
